FAERS Safety Report 9776405 (Version 1)
Quarter: 2013Q4

REPORT INFORMATION
  Report Type: Spontaneous
  Country: US (occurrence: US)
  Receive Date: 20131220
  Receipt Date: 20131220
  Transmission Date: 20140711
  Serious: No
  Sender: FDA-Public Use
  Company Number: US-BIOGENIDEC-2013BI107134

PATIENT
  Age: 54 Year
  Sex: Male

DRUGS (11)
  1. TECFIDERA [Suspect]
     Indication: MULTIPLE SCLEROSIS
     Route: 048
     Dates: start: 20130918
  2. CETIRIZINE [Concomitant]
  3. PROVIGIL [Concomitant]
  4. KLONOPIN [Concomitant]
  5. DITROPAN [Concomitant]
  6. UROXATRAL [Concomitant]
  7. NEURONTIN [Concomitant]
  8. ZANAFLEX [Concomitant]
  9. PREVACID [Concomitant]
  10. AMPYRA [Concomitant]
  11. VERAPAMIL [Concomitant]

REACTIONS (4)
  - Pruritus [Unknown]
  - Flushing [Unknown]
  - Rash papular [Recovered/Resolved]
  - Urticaria [Recovered/Resolved]
